FAERS Safety Report 4643399-3 (Version None)
Quarter: 2005Q2

REPORT INFORMATION
  Report Type: 
  Country: None (occurrence: None)
  Receive Date: 20050324
  Receipt Date: 20041216
  Transmission Date: 20051028
  Serious: Yes (Life-Threatening, Other)
  Sender: FDA-Public Use
  Company Number: 210697

PATIENT
  Age: 55 Year
  Sex: Female
  Weight: 86.2 kg

DRUGS (6)
  1. AVASTIN [Suspect]
     Indication: COLORECTAL CANCER METASTATIC
     Dosage: 450 MG,Q2W,INTRAVENOUS
     Route: 042
     Dates: start: 20041103
  2. FLUOROURACIL [Concomitant]
  3. LEUCOVORIN CALCIUM [Concomitant]
  4. DURAGESIC (FENTANYL CITRATE) [Concomitant]
  5. LORAZEPAM [Concomitant]
  6. PAXIL (PAROXETIN HYDROCHLORIDE) [Concomitant]

REACTIONS (2)
  - CATHETER RELATED COMPLICATION [None]
  - VENA CAVA THROMBOSIS [None]
